FAERS Safety Report 15284135 (Version 1)
Quarter: 2018Q3

REPORT INFORMATION
  Report Type: Spontaneous
  Country: IT (occurrence: IT)
  Receive Date: 20180816
  Receipt Date: 20180816
  Transmission Date: 20181010
  Serious: Yes (Other)
  Sender: FDA-Public Use
  Company Number: IT-PFIZER INC-2018321017

PATIENT
  Age: 53 Year
  Sex: Male
  Weight: 85 kg

DRUGS (11)
  1. MIDAZOLAM [Concomitant]
     Active Substance: MIDAZOLAM HYDROCHLORIDE
     Indication: ANAESTHESIA
     Dosage: UNK
  2. THIOPENTAL [Concomitant]
     Active Substance: THIOPENTAL
     Indication: ANAESTHESIA
     Dosage: UNK
  3. METHYLPREDNISOLONE SODIUM SUCCINATE. [Suspect]
     Active Substance: METHYLPREDNISOLONE SODIUM SUCCINATE
     Dosage: 1 G, UNK
     Route: 042
  4. CHLORPHENIRAMINE MALEATE. [Suspect]
     Active Substance: CHLORPHENIRAMINE MALEATE
     Dosage: 10 MG, UNK
     Route: 042
  5. ACETAMINOPHEN. [Suspect]
     Active Substance: ACETAMINOPHEN
     Dosage: 500 MG, UNK (THROUGH A NOSE?GASTRIC TUBE)
     Route: 045
  6. DESFLURANE. [Concomitant]
     Active Substance: DESFLURANE
     Indication: ANAESTHESIA
     Dosage: UNK
  7. AMPICILLIN [Concomitant]
     Active Substance: AMPICILLIN
     Dosage: 2 G, UNK
  8. ANTITHYMOCYTE IMMUNOGLOBULIN [Suspect]
     Active Substance: THYMOCYTE IMMUNE GLOBULIN NOS
     Indication: LIVER TRANSPLANT
     Dosage: 120 MG, UNK (SLOW INTRAVENOUS INFUSION, IN 500 ML OF SALINE SOLUTION)
     Route: 042
  9. URAPIDIL [Concomitant]
     Active Substance: URAPIDIL
     Indication: BLOOD PRESSURE INCREASED
     Dosage: UNK
  10. FENTANYL. [Concomitant]
     Active Substance: FENTANYL
     Indication: ANAESTHESIA
     Dosage: UNK
  11. VECURONIUM [Concomitant]
     Active Substance: VECURONIUM BROMIDE
     Indication: ANAESTHESIA
     Dosage: UNK

REACTIONS (5)
  - Swelling [Recovered/Resolved]
  - Cardiovascular disorder [Recovered/Resolved]
  - Hyperthermia [Recovered/Resolved]
  - Acute kidney injury [Recovered/Resolved]
  - Serum sickness [Recovered/Resolved]
